FAERS Safety Report 4853256-5 (Version None)
Quarter: 2005Q4

REPORT INFORMATION
  Report Type: 
  Country: None (occurrence: None)
  Receive Date: 20051214
  Receipt Date: 20051209
  Transmission Date: 20060501
  Serious: Yes (Death, Hospitalization)
  Sender: FDA-Public Use
  Company Number: ES-SANOFI-SYNTHELABO-A01200508611

PATIENT
  Age: 61 Year
  Sex: Female
  Weight: 50 kg

DRUGS (7)
  1. ELOXATIN [Suspect]
     Indication: PANCREATIC CARCINOMA
     Dosage: 180 G TOTAL
     Route: 042
     Dates: start: 20050928, end: 20050928
  2. GEMZAR [Concomitant]
     Indication: PANCREATIC CARCINOMA
     Dosage: CYCLICALLY
     Route: 042
     Dates: start: 20041109, end: 20050201
  3. PACLITAXEL [Concomitant]
     Indication: PANCREATIC CARCINOMA
     Dosage: CYCLICALLY
     Route: 065
     Dates: start: 20050201, end: 20050907
  4. MST [Concomitant]
     Route: 048
  5. MAYGACE [Concomitant]
     Route: 048
  6. PANCREASE [Concomitant]
     Route: 048
  7. OMEPRAZOLE [Concomitant]
     Route: 048

REACTIONS (3)
  - DEATH [None]
  - MYOCARDIAL INFARCTION [None]
  - PERICARDITIS [None]
